FAERS Safety Report 5613653-7 (Version None)
Quarter: 2008Q2

REPORT INFORMATION
  Report Type: 
  Country: None (occurrence: None)
  Receive Date: 20080205
  Receipt Date: 20080129
  Transmission Date: 20081010
  Serious: Yes (Other)
  Sender: FDA-Public Use
  Company Number: GB-JNJFOC-20071003529

PATIENT
  Sex: Male

DRUGS (7)
  1. REMICADE [Suspect]
     Dosage: START DATE ONE YEAR BEFORE ONSET
     Route: 042
  2. REMICADE [Suspect]
     Dosage: START DATE ONE YEAR BEFORE ONSET
     Route: 042
  3. REMICADE [Suspect]
     Indication: ANKYLOSING SPONDYLITIS
     Dosage: START DATE ONE YEAR BEFORE ONSET
     Route: 042
  4. ANTI INFLAMMATORIES [Concomitant]
  5. FLEXIN [Suspect]
  6. FLEXIN [Suspect]
  7. CHLORPHENIRAMINE MALEATE [Concomitant]
     Indication: PREMEDICATION

REACTIONS (11)
  - ANXIETY [None]
  - ASTHENIA [None]
  - BRADYCARDIA [None]
  - DEEP VEIN THROMBOSIS [None]
  - DIZZINESS [None]
  - HYPERSENSITIVITY [None]
  - HYPOTENSION [None]
  - LOSS OF CONSCIOUSNESS [None]
  - NAUSEA [None]
  - SYNCOPE [None]
  - VOMITING [None]
